FAERS Safety Report 5816795-6 (Version None)
Quarter: 2008Q3

REPORT INFORMATION
  Report Type: 
  Country: None (occurrence: None)
  Receive Date: 20080721
  Receipt Date: 20080714
  Transmission Date: 20090109
  Serious: Yes (Hospitalization)
  Sender: FDA-Public Use
  Company Number: IL-PFIZER INC-2008059197

PATIENT
  Age: 44 Year
  Sex: Female

DRUGS (6)
  1. SALAZOPYRIN [Suspect]
  2. ETOPAN [Suspect]
  3. VOLTAREN [Suspect]
  4. ARCOXIA [Suspect]
  5. OMEPRAZOLE [Concomitant]
  6. PLAQUENIL [Concomitant]

REACTIONS (7)
  - ALANINE AMINOTRANSFERASE INCREASED [None]
  - ARTHRALGIA [None]
  - ARTHRITIS [None]
  - ASPARTATE AMINOTRANSFERASE INCREASED [None]
  - BLOOD ALKALINE PHOSPHATASE INCREASED [None]
  - GAMMA-GLUTAMYLTRANSFERASE INCREASED [None]
  - HEPATIC FUNCTION ABNORMAL [None]
